FAERS Safety Report 7342738-2 (Version None)
Quarter: 2011Q1

REPORT INFORMATION
  Report Type: 
  Country: None (occurrence: None)
  Receive Date: 20110310
  Receipt Date: 20110304
  Transmission Date: 20110831
  Serious: Yes (Hospitalization)
  Sender: FDA-Public Use
  Company Number: JP-BAYER-2011-020990

PATIENT
  Age: 77 Year
  Sex: Female

DRUGS (1)
  1. NEXAVAR [Suspect]
     Indication: RENAL CANCER
     Dosage: 200 MG, QID
     Route: 048
     Dates: start: 20110203, end: 20110201

REACTIONS (3)
  - PALMAR-PLANTAR ERYTHRODYSAESTHESIA SYNDROME [None]
  - PLEURAL EFFUSION [None]
  - DECREASED APPETITE [None]
